FAERS Safety Report 24395995 (Version 1)
Quarter: 2024Q4

REPORT INFORMATION
  Report Type: Spontaneous
  Country: US (occurrence: None)
  Receive Date: 20241003
  Receipt Date: 20241003
  Transmission Date: 20250115
  Serious: Yes (Other)
  Sender: Public
  Company Number: None

PATIENT
  Age: 62 Year
  Sex: Female

DRUGS (1)
  1. DUPIXENT [Suspect]
     Active Substance: DUPILUMAB
     Dosage: OTHER QUANTITY : ONE INJECTION(S) ;?OTHER FREQUENCY : OTHER;?
     Route: 058

REACTIONS (5)
  - Dry eye [None]
  - Eye pruritus [None]
  - Eye pain [None]
  - Visual impairment [None]
  - Cataract [None]
